FAERS Safety Report 12613665 (Version 4)
Quarter: 2016Q4

REPORT INFORMATION
  Report Type: Spontaneous
  Country: US (occurrence: US)
  Receive Date: 20160802
  Receipt Date: 20161011
  Transmission Date: 20170207
  Serious: Yes (Other)
  Sender: FDA-Public Use
  Company Number: US-RECKITT BENCKISER HEALTHCARE INT LIMITED-RB-88466-2016

PATIENT
  Age: 2 Year
  Sex: Male

DRUGS (1)
  1. DELSYM [Suspect]
     Active Substance: DEXTROMETHORPHAN
     Indication: PRODUCT USED FOR UNKNOWN INDICATION
     Dosage: 10 ML, SINGLE
     Route: 065
     Dates: start: 20160724, end: 201607

REACTIONS (5)
  - Vision blurred [Recovered/Resolved]
  - Balance disorder [Recovered/Resolved]
  - Somnolence [Recovered/Resolved]
  - Accidental exposure to product by child [Recovered/Resolved]
  - Dizziness [Recovered/Resolved]

NARRATIVE: CASE EVENT DATE: 20160724
